FAERS Safety Report 19924515 (Version 1)
Quarter: 2021Q4

REPORT INFORMATION
  Report Type: Spontaneous
  Country: JP (occurrence: JP)
  Receive Date: 20211006
  Receipt Date: 20211006
  Transmission Date: 20220303
  Serious: Yes (Hospitalization, Other)
  Sender: FDA-Public Use
  Company Number: JP-BAYER-2021A219177

PATIENT
  Age: 54 Year
  Sex: Female

DRUGS (1)
  1. BETAFERON [Suspect]
     Active Substance: INTERFERON BETA-1B
     Indication: Multiple sclerosis
     Dosage: 800 UNITS ALTERNATE-DAY

REACTIONS (3)
  - Hypertensive emergency [None]
  - Retinal haemorrhage [None]
  - Thrombotic microangiopathy [None]
